FAERS Safety Report 12373155 (Version 2)
Quarter: 2016Q2

REPORT INFORMATION
  Report Type: Spontaneous
  Country: CN (occurrence: CN)
  Receive Date: 20160516
  Receipt Date: 20160531
  Transmission Date: 20160815
  Serious: Yes (Hospitalization)
  Sender: FDA-Public Use
  Company Number: CN-ELI_LILLY_AND_COMPANY-CN201605003823

PATIENT
  Sex: Female

DRUGS (5)
  1. HUMALOG MIX50/50 [Suspect]
     Active Substance: INSULIN LISPRO
     Dosage: 24 DF, EACH EVENING
     Route: 058
     Dates: start: 2015, end: 201604
  2. HUMALOG MIX75/25 [Suspect]
     Active Substance: INSULIN LISPRO
     Dosage: 24 DF, EACH EVENING
     Route: 058
     Dates: start: 201604
  3. HUMALOG MIX75/25 [Suspect]
     Active Substance: INSULIN LISPRO
     Indication: DIABETES MELLITUS
     Dosage: 28 DF, EACH MORNING
     Route: 058
     Dates: start: 201604
  4. HUMALOG MIX50/50 [Suspect]
     Active Substance: INSULIN LISPRO
     Indication: DIABETES MELLITUS
     Dosage: 26 DF, EACH MORNING
     Route: 058
     Dates: start: 2015, end: 201604
  5. HUMALOG MIX75/25 [Suspect]
     Active Substance: INSULIN LISPRO
     Dosage: 12 DF, QD
     Route: 058
     Dates: start: 201604

REACTIONS (2)
  - Blood glucose increased [Unknown]
  - Cerebral infarction [Recovered/Resolved]
